FAERS Safety Report 6260105-X (Version None)
Quarter: 2009Q3

REPORT INFORMATION
  Report Type: 
  Country: None (occurrence: None)
  Receive Date: 20090708
  Receipt Date: 20090626
  Transmission Date: 20100115
  Serious: Yes (Other)
  Sender: FDA-Public Use
  Company Number: US-TYCO HEALTHCARE/MALLINCKRODT-T200800066

PATIENT
  Sex: Male

DRUGS (34)
  1. OPTIMARK [Suspect]
     Indication: NUCLEAR MAGNETIC RESONANCE IMAGING
     Dosage: UNK, SINGLE
     Dates: start: 20020904, end: 20020904
  2. OPTIMARK [Suspect]
     Indication: ANGIOGRAM
     Dosage: UNK, SINGLE
     Dates: start: 20030124, end: 20030124
  3. OPTIMARK [Suspect]
     Dosage: UNK, SINGLE
     Dates: start: 20030527, end: 20030527
  4. OPTIMARK [Suspect]
     Dosage: UNK, SINGLE
     Dates: start: 20030812, end: 20030812
  5. OPTIMARK [Suspect]
     Dosage: UNK, SINGLE
     Dates: start: 20031215, end: 20031215
  6. OPTIMARK [Suspect]
     Dosage: UNK, SINGLE
     Dates: start: 20040318, end: 20040318
  7. OPTIMARK [Suspect]
     Dosage: UNK, SINGLE
     Dates: start: 20040814, end: 20040814
  8. OPTIMARK [Suspect]
     Dosage: UNK, SINGLE
     Dates: start: 20050307, end: 20050307
  9. OPTIMARK [Suspect]
     Dosage: UNK, SINGLE
     Dates: start: 20060210, end: 20060210
  10. OPTIMARK [Suspect]
     Dosage: UNK, SINGLE
     Dates: start: 20060502, end: 20060502
  11. OPTIMARK [Suspect]
     Dosage: UNK, SINGLE
     Dates: start: 20060626, end: 20060626
  12. OPTIMARK [Suspect]
     Dosage: UNK, SINGLE
     Dates: start: 20060926, end: 20060926
  13. OPTIMARK [Suspect]
     Dosage: UNK, SINGLE
     Dates: start: 20061122, end: 20061122
  14. OPTIMARK [Suspect]
     Dosage: UNK, SINGLE
     Dates: start: 20061127, end: 20061127
  15. OPTIMARK [Suspect]
     Dosage: UNK, SINGLE
     Dates: start: 20070115, end: 20070115
  16. OPTIMARK [Suspect]
     Dosage: UNK, SINGLE
     Dates: start: 20070419, end: 20070419
  17. OPTIMARK [Suspect]
     Dosage: UNK, SINGLE
     Dates: start: 20070526
  18. OMNISCAN [Suspect]
     Indication: NUCLEAR MAGNETIC RESONANCE IMAGING
     Dosage: UNK, SINGLE
     Dates: start: 20050714, end: 20050714
  19. OMNISCAN [Suspect]
     Indication: ANGIOGRAM
     Dosage: UNK, SINGLE
     Dates: start: 20060319, end: 20060319
  20. OMNISCAN [Suspect]
     Indication: NUCLEAR MAGNETIC RESONANCE IMAGING BRAIN
     Dosage: UNK, SINGLE
     Dates: start: 20060320, end: 20060320
  21. OMNISCAN [Suspect]
     Dosage: UNK, SINGLE
     Dates: start: 20060802, end: 20060802
  22. ZOLOFT [Concomitant]
  23. CARDIZEM [Concomitant]
  24. SEROQUEL [Concomitant]
  25. INSULIN [Concomitant]
  26. FLAGYL [Concomitant]
  27. DIOVAN                             /01319601/ [Concomitant]
  28. DILTIAZEM [Concomitant]
  29. PROZAC                             /00724401/ [Concomitant]
  30. IRON SULFATETHIAMIN COMPOUND TAB [Concomitant]
  31. HYDROCODONE BITARTRATE [Concomitant]
  32. LABETALOL HCL [Concomitant]
  33. PREVACID [Concomitant]
  34. TRAZODONE HCL [Concomitant]

REACTIONS (2)
  - NEPHROGENIC SYSTEMIC FIBROSIS [None]
  - OFF LABEL USE [None]
